FAERS Safety Report 21295293 (Version 3)
Quarter: 2023Q1

REPORT INFORMATION
  Report Type: Report from Study
  Country: US (occurrence: US)
  Receive Date: 20220905
  Receipt Date: 20230313
  Transmission Date: 20230418
  Serious: Yes (Other)
  Sender: FDA-Public Use
  Company Number: US-ABBVIE-22K-163-4528610-00

PATIENT
  Age: 69 Year
  Sex: Male
  Weight: 141 kg

DRUGS (18)
  1. HUMIRA [Suspect]
     Active Substance: ADALIMUMAB
     Indication: Colitis ulcerative
     Dosage: END DATE WAS IN 2022.?CF
     Route: 058
     Dates: start: 20220318
  2. HUMIRA [Suspect]
     Active Substance: ADALIMUMAB
     Dosage: CF
     Route: 058
     Dates: start: 20220814, end: 20220828
  3. HUMIRA [Suspect]
     Active Substance: ADALIMUMAB
     Dosage: CF
     Route: 058
     Dates: start: 20220909, end: 20220923
  4. PRAVACHOL [Concomitant]
     Active Substance: PRAVASTATIN SODIUM
     Indication: Product used for unknown indication
     Route: 048
  5. FISH OIL [Concomitant]
     Active Substance: FISH OIL
     Indication: Product used for unknown indication
     Route: 048
  6. PFIZER-BIONTECH COVID-19 VACCINE [Concomitant]
     Active Substance: TOZINAMERAN
     Indication: COVID-19 immunisation
     Dosage: TIME INTERVAL: 1 TOTAL: THIRD DOSE.
     Route: 030
     Dates: start: 20220810, end: 20220810
  7. PFIZER-BIONTECH COVID-19 VACCINE [Concomitant]
     Active Substance: TOZINAMERAN
     Indication: COVID-19 immunisation
     Dosage: TIME INTERVAL: 1 TOTAL: FIRST DOSE.
     Route: 030
     Dates: start: 20210303, end: 20210303
  8. PFIZER-BIONTECH COVID-19 VACCINE [Concomitant]
     Active Substance: TOZINAMERAN
     Indication: COVID-19 immunisation
     Dosage: TIME INTERVAL: 1 TOTAL: SECOND DOSE.
     Route: 030
     Dates: start: 20210329, end: 20210329
  9. B complex vitamin [Concomitant]
     Indication: Product used for unknown indication
     Route: 048
  10. NORVASC [Concomitant]
     Active Substance: AMLODIPINE BESYLATE
     Indication: Product used for unknown indication
     Route: 048
  11. AVAPRO [Concomitant]
     Active Substance: IRBESARTAN
     Indication: Product used for unknown indication
     Route: 048
  12. VITAMIN D3 [Concomitant]
     Active Substance: CHOLECALCIFEROL
     Indication: Product used for unknown indication
  13. CYANOCOBALAMIN [Concomitant]
     Active Substance: CYANOCOBALAMIN
     Indication: Product used for unknown indication
     Route: 048
  14. ELIQUIS [Concomitant]
     Active Substance: APIXABAN
     Indication: Product used for unknown indication
     Route: 048
  15. FOLIC ACID [Concomitant]
     Active Substance: FOLIC ACID
     Indication: Product used for unknown indication
     Route: 048
  16. IRON [Concomitant]
     Active Substance: IRON
     Indication: Product used for unknown indication
     Route: 048
  17. IMODIUM [Concomitant]
     Active Substance: LOPERAMIDE HYDROCHLORIDE
     Indication: Product used for unknown indication
     Route: 048
  18. TOPROL XL [Concomitant]
     Active Substance: METOPROLOL SUCCINATE
     Indication: Product used for unknown indication
     Route: 048

REACTIONS (3)
  - Blood test abnormal [Unknown]
  - Lupus-like syndrome [Unknown]
  - Liver disorder [Unknown]

NARRATIVE: CASE EVENT DATE: 20220607
